FAERS Safety Report 6841785-4 (Version None)
Quarter: 2010Q3

REPORT INFORMATION
  Report Type: 
  Country: None (occurrence: None)
  Receive Date: 20100714
  Receipt Date: 20100706
  Transmission Date: 20110219
  Serious: Yes (Death, Hospitalization, Other)
  Sender: FDA-Public Use
  Company Number: US-AMGEN-KDL422628

PATIENT
  Sex: Male

DRUGS (1)
  1. ENBREL [Suspect]
     Indication: RHEUMATOID ARTHRITIS
     Dates: start: 20040501, end: 20060101

REACTIONS (7)
  - COLLAPSE OF LUNG [None]
  - FALL [None]
  - LUNG INFECTION [None]
  - PNEUMONIA [None]
  - RIB FRACTURE [None]
  - SEPSIS [None]
  - TRAUMATIC LUNG INJURY [None]
